FAERS Safety Report 15031991 (Version 1)
Quarter: 2018Q2

REPORT INFORMATION
  Report Type: Spontaneous
  Country: FR (occurrence: FR)
  Receive Date: 20180619
  Receipt Date: 20180619
  Transmission Date: 20180711
  Serious: Yes (Death, Other)
  Sender: FDA-Public Use
  Company Number: FR-MYLANLABS-2018M1040431

PATIENT
  Age: 91 Year
  Sex: Female

DRUGS (3)
  1. TRAMADOL. [Suspect]
     Active Substance: TRAMADOL
     Indication: PRODUCT USED FOR UNKNOWN INDICATION
     Dosage: 350 MG, TOTAL
     Route: 048
     Dates: start: 20171208, end: 20171208
  2. LAMALINE                           /00764901/ [Suspect]
     Active Substance: ACETAMINOPHEN\BELLADONNA LEAF\CAFFEINE\OPIUM
     Indication: PRODUCT USED FOR UNKNOWN INDICATION
     Dosage: NON PR?CIS?E
     Route: 048
  3. LYRICA [Suspect]
     Active Substance: PREGABALIN
     Indication: PRODUCT USED FOR UNKNOWN INDICATION
     Dosage: NON PR?CIS?E
     Route: 048

REACTIONS (3)
  - Somnolence [Unknown]
  - Pneumonia aspiration [Fatal]
  - Poisoning deliberate [Unknown]

NARRATIVE: CASE EVENT DATE: 20171208
